FAERS Safety Report 14119577 (Version 2)
Quarter: 2018Q2

REPORT INFORMATION
  Report Type: Report from Study
  Country: US (occurrence: US)
  Receive Date: 20171024
  Receipt Date: 20180411
  Transmission Date: 20180711
  Serious: Yes (Hospitalization)
  Sender: FDA-Public Use
  Company Number: US-TAKEDA-2017MPI009305

PATIENT
  Age: 77 Year
  Sex: Female
  Weight: 68.93 kg

DRUGS (5)
  1. CYTOXAN [Suspect]
     Active Substance: CYCLOPHOSPHAMIDE
     Indication: PLASMA CELL MYELOMA
     Dosage: 300 MG/M2, UNK
     Route: 048
     Dates: start: 20170807, end: 20180314
  2. OPIOIDS [Concomitant]
     Active Substance: UNSPECIFIED INGREDIENT
     Indication: PAIN
     Dosage: UNK
     Route: 065
  3. DECADRON [Suspect]
     Active Substance: DEXAMETHASONE
     Dosage: 40 MG, UNK
     Route: 048
     Dates: start: 20170807, end: 20180314
  4. DECADRON [Suspect]
     Active Substance: DEXAMETHASONE
     Indication: PLASMA CELL MYELOMA
     Dosage: 40 MG, UNK
     Route: 048
     Dates: start: 20170318, end: 20170707
  5. VELCADE [Suspect]
     Active Substance: BORTEZOMIB
     Indication: PLASMA CELL MYELOMA
     Dosage: 1.5 MG/M2, UNK
     Route: 058
     Dates: start: 20170807, end: 20180314

REACTIONS (5)
  - Cellulitis [Not Recovered/Not Resolved]
  - Gastroenteritis [Recovered/Resolved]
  - Troponin increased [Recovered/Resolved]
  - Pneumonia [Recovered/Resolved]
  - Cholelithiasis [Recovered/Resolved]

NARRATIVE: CASE EVENT DATE: 20170824
